FAERS Safety Report 12197103 (Version 8)
Quarter: 2016Q3

REPORT INFORMATION
  Report Type: Report from Study
  Country: US (occurrence: US)
  Receive Date: 20160321
  Receipt Date: 20160809
  Transmission Date: 20161109
  Serious: Yes (Hospitalization, Other)
  Sender: FDA-Public Use
  Company Number: US-ACTELION-A-NJ2016-131948

PATIENT
  Age: 49 Year
  Sex: Female

DRUGS (6)
  1. TRENTAL [Concomitant]
     Active Substance: PENTOXIFYLLINE
  2. VELETRI [Suspect]
     Active Substance: EPOPROSTENOL
     Dosage: 18 NG/KG, PER MIN
     Route: 042
     Dates: start: 20150924
  3. VELETRI [Suspect]
     Active Substance: EPOPROSTENOL
     Indication: PORTOPULMONARY HYPERTENSION
     Dosage: 17 NG/KG, PER MIN
     Route: 042
     Dates: start: 20150924
  4. SILDENAFIL. [Concomitant]
     Active Substance: SILDENAFIL
  5. OPSUMIT [Suspect]
     Active Substance: MACITENTAN
     Indication: PORTOPULMONARY HYPERTENSION
     Dosage: 10 MG, QD
     Route: 048
     Dates: start: 20160127
  6. CEFTRIAXONE. [Concomitant]
     Active Substance: CEFTRIAXONE

REACTIONS (35)
  - Urinary tract infection [Unknown]
  - Pleural effusion [Not Recovered/Not Resolved]
  - Pyrexia [Recovered/Resolved]
  - Fatigue [Recovered/Resolved]
  - Staphylococcal infection [Recovered/Resolved]
  - Infection [Unknown]
  - Cold sweat [Recovered/Resolved]
  - Hypokalaemia [Recovering/Resolving]
  - Migraine [Unknown]
  - Right ventricular hypertrophy [Recovering/Resolving]
  - Nausea [Recovering/Resolving]
  - Cough [Not Recovered/Not Resolved]
  - Weight increased [Not Recovered/Not Resolved]
  - Condition aggravated [Not Recovered/Not Resolved]
  - Diarrhoea [Recovering/Resolving]
  - Pain in jaw [Unknown]
  - Aspiration pleural cavity [Unknown]
  - Vomiting [Recovering/Resolving]
  - Dyspnoea [Not Recovered/Not Resolved]
  - Oxygen saturation decreased [Not Recovered/Not Resolved]
  - Culture positive [Recovered/Resolved]
  - Dysuria [Unknown]
  - Acute kidney injury [Unknown]
  - Electrocardiogram abnormal [Recovering/Resolving]
  - Pulmonary congestion [Not Recovered/Not Resolved]
  - Fluid retention [Recovering/Resolving]
  - Catheter site erythema [Recovered/Resolved]
  - Catheter site discharge [Recovered/Resolved]
  - Complication associated with device [Recovered/Resolved]
  - Abdominal cavity drainage [Recovering/Resolving]
  - Oedema peripheral [Recovering/Resolving]
  - Chest pain [Not Recovered/Not Resolved]
  - Asthenia [Recovered/Resolved]
  - Blood culture positive [Recovered/Resolved]
  - Ascites [Not Recovered/Not Resolved]

NARRATIVE: CASE EVENT DATE: 20160207
